FAERS Safety Report 19186003 (Version 2)
Quarter: 2021Q2

REPORT INFORMATION
  Report Type: Report from Study
  Country: GB (occurrence: GB)
  Receive Date: 20210427
  Receipt Date: 20210524
  Transmission Date: 20210717
  Serious: No
  Sender: FDA-Public Use
  Company Number: NVSC2021GB087907

PATIENT
  Sex: Male

DRUGS (1)
  1. OMNITROPE [Suspect]
     Active Substance: SOMATROPIN
     Indication: GROWTH HORMONE DEFICIENCY
     Dosage: 7 MG, QD(ROUTE: AS DIRECTED)
     Route: 065

REACTIONS (3)
  - Product dose omission issue [Unknown]
  - Learning disability [Unknown]
  - Needle issue [Unknown]
